FAERS Safety Report 9505891 (Version 2)
Quarter: 2013Q3

REPORT INFORMATION
  Report Type: Spontaneous
  Country: US (occurrence: None)
  Receive Date: 20130228
  Receipt Date: 20130815
  Transmission Date: 20140515
  Serious: Yes (Other)
  Sender: FDA-Public Use
  Company Number: ADR-2013-00316

PATIENT
  Sex: Female

DRUGS (2)
  1. BACLOFEN INTRATHECAL [Suspect]
     Indication: MUSCLE SPASTICITY
  2. MORPHINE DRUG [Concomitant]

REACTIONS (8)
  - Blindness unilateral [None]
  - Drug withdrawal syndrome [None]
  - Somnolence [None]
  - Pain [None]
  - Malaise [None]
  - Abdominal rigidity [None]
  - No therapeutic response [None]
  - Implant site erosion [None]
